FAERS Safety Report 5736725-5 (Version None)
Quarter: 2008Q2

REPORT INFORMATION
  Report Type: 
  Country: None (occurrence: None)
  Receive Date: 20080513
  Receipt Date: 20080506
  Transmission Date: 20081010
  Serious: Yes (Other)
  Sender: FDA-Public Use
  Company Number: PHEH2008US03338

PATIENT
  Sex: Female

DRUGS (1)
  1. TEKTURNA [Suspect]
     Indication: HYPERTENSION
     Dosage: 150 MG, QD
     Route: 048
     Dates: start: 20070101

REACTIONS (5)
  - DEPRESSIVE SYMPTOM [None]
  - FATIGUE [None]
  - FEELING ABNORMAL [None]
  - MOOD ALTERED [None]
  - THERAPY RESPONDER [None]
